FAERS Safety Report 4396523-4 (Version None)
Quarter: 2004Q3

REPORT INFORMATION
  Report Type: 
  Country: None (occurrence: None)
  Receive Date: 20040709
  Receipt Date: 20040623
  Transmission Date: 20050211
  Serious: Yes (Other)
  Sender: FDA-Public Use
  Company Number: JP-JNJFOC-20040701117

PATIENT
  Age: 60 Year
  Sex: Female

DRUGS (8)
  1. RISPERDAL [Suspect]
     Indication: SCHIZOPHRENIA
     Dosage: 6 MG, IN 1 DAY, ORAL
     Route: 048
  2. LORAZEPAM [Concomitant]
  3. CHLORPROMAZINE TANNATE (CHLORPROMAZINE) [Concomitant]
  4. FLUNITRAZEPAM (FLUNITRAZEPAM) [Concomitant]
  5. ALDIOXA           (ALDIOXA) [Concomitant]
  6. STOMACHICS AND DIGESTIVES (STOMACHIC MIXTURE /THA/) [Concomitant]
  7. SENNOSIDE (ALL OTHER THERAPEUTIC PRODUCTS) [Concomitant]
  8. SODIUM PICOSULFATE         (SODIUM PICOSULFATE) [Concomitant]

REACTIONS (3)
  - ANXIETY [None]
  - ERYTHROPENIA [None]
  - INADEQUATE DIET [None]
